FAERS Safety Report 6073184-X (Version None)
Quarter: 2009Q1

REPORT INFORMATION
  Report Type: 
  Country: None (occurrence: None)
  Receive Date: 20090206
  Receipt Date: 20090105
  Transmission Date: 20090719
  Serious: Yes (Other)
  Sender: FDA-Public Use
  Company Number: GAM-216-08-DE

PATIENT
  Age: 64 Year
  Sex: Female

DRUGS (2)
  1. OCTAGAM [Suspect]
     Indication: IDIOPATHIC THROMBOCYTOPENIC PURPURA
     Dosage: 30 G I.V.; BATCH #B815A843; BATCH #B815B843; BATCH #B828B843
     Route: 042
     Dates: start: 20080922, end: 20080922
  2. OCTAGAM [Suspect]
     Route: 042
     Dates: start: 20080922, end: 20080922

REACTIONS (5)
  - CEREBROVASCULAR ACCIDENT [None]
  - CONFUSIONAL STATE [None]
  - HEADACHE [None]
  - NAUSEA [None]
  - VISUAL IMPAIRMENT [None]
